FAERS Safety Report 9868910 (Version 2)
Quarter: 2014Q1

REPORT INFORMATION
  Report Type: Report from Study
  Country: DE (occurrence: DE)
  Receive Date: 20140204
  Receipt Date: 20140204
  Transmission Date: 20141002
  Serious: Yes (Death, Hospitalization, Other)
  Sender: FDA-Public Use
  Company Number: DE-ROCHE-1268381

PATIENT
  Sex: Female

DRUGS (8)
  1. RITUXIMAB [Suspect]
     Indication: RHEUMATOID ARTHRITIS
     Route: 065
     Dates: start: 20111117, end: 20120910
  2. TOCILIZUMAB [Suspect]
     Indication: PRODUCT USED FOR UNKNOWN INDICATION
     Route: 065
     Dates: start: 201302
  3. ADALIMUMAB [Suspect]
     Indication: PRODUCT USED FOR UNKNOWN INDICATION
     Route: 065
     Dates: start: 200903, end: 200903
  4. ADALIMUMAB [Suspect]
     Route: 065
     Dates: start: 200905, end: 200906
  5. ADALIMUMAB [Suspect]
     Route: 065
     Dates: start: 201005, end: 201007
  6. METHOTREXATE [Concomitant]
     Indication: RHEUMATOID ARTHRITIS
     Route: 065
  7. LEFLUNOMID [Concomitant]
     Indication: RHEUMATOID ARTHRITIS
     Route: 065
  8. LEFLUNOMID [Concomitant]
     Route: 065

REACTIONS (3)
  - Death [Fatal]
  - Femoral neck fracture [Unknown]
  - Hip arthroplasty [Unknown]
